FAERS Safety Report 8700228 (Version 2)
Quarter: 2014Q1

REPORT INFORMATION
  Report Type: Spontaneous
  Country: US (occurrence: US)
  Receive Date: 20120802
  Receipt Date: 20140307
  Transmission Date: 20141002
  Serious: No
  Sender: FDA-Public Use
  Company Number: US-AMGEN-USASP2012041556

PATIENT
  Age: 58 Year
  Sex: Male

DRUGS (1)
  1. ENBREL [Suspect]
     Indication: RHEUMATOID ARTHRITIS
     Dosage: 50 MG, QWK
     Route: 058
     Dates: start: 20120606

REACTIONS (9)
  - Impaired healing [Not Recovered/Not Resolved]
  - Increased tendency to bruise [Unknown]
  - Haemorrhage [Unknown]
  - Therapeutic response decreased [Unknown]
  - Hypoaesthesia [Recovered/Resolved]
  - Injection site pain [Unknown]
  - Cellulitis [Not Recovered/Not Resolved]
  - Sinusitis [Not Recovered/Not Resolved]
  - Paraesthesia [Recovered/Resolved]
